FAERS Safety Report 18437095 (Version 1)
Quarter: 2020Q4

REPORT INFORMATION
  Report Type: Spontaneous
  Country: US (occurrence: US)
  Receive Date: 20201028
  Receipt Date: 20201028
  Transmission Date: 20210114
  Serious: Yes (Death, Other)
  Sender: FDA-Public Use
  Company Number: US-PURDUE-USA-2020-0169105

PATIENT
  Sex: Male

DRUGS (1)
  1. HYDROMORPHONE TABLET (RHODES) [Suspect]
     Active Substance: HYDROMORPHONE
     Indication: PRODUCT USED FOR UNKNOWN INDICATION
     Dosage: UNK
     Route: 048

REACTIONS (5)
  - Unevaluable event [Unknown]
  - Drug dependence [Unknown]
  - Emotional distress [Unknown]
  - Death [Fatal]
  - Impaired work ability [Unknown]

NARRATIVE: CASE EVENT DATE: 2005
